FAERS Safety Report 13779513 (Version 1)
Quarter: 2017Q3

REPORT INFORMATION
  Report Type: Spontaneous
  Country: US (occurrence: US)
  Receive Date: 20170721
  Receipt Date: 20170721
  Transmission Date: 20171127
  Serious: No
  Sender: FDA-Public Use
  Company Number: US-MYLANLABS-2017M1018687

PATIENT
  Age: 80 Year
  Sex: Female
  Weight: 68.27 kg

DRUGS (1)
  1. CLOBETASOL PROPIONATE FOAM 5% [Suspect]
     Active Substance: CLOBETASOL PROPIONATE
     Indication: ALOPECIA
     Dosage: 0.05 %, QD FOR 1 WEEK PER MONTH
     Route: 061
     Dates: start: 201702

REACTIONS (3)
  - Application site dryness [Not Recovered/Not Resolved]
  - Application site pain [Unknown]
  - Alopecia [Not Recovered/Not Resolved]

NARRATIVE: CASE EVENT DATE: 201702
